FAERS Safety Report 10067571 (Version 30)
Quarter: 2016Q2

REPORT INFORMATION
  Report Type: Report from Study
  Country: CA (occurrence: CA)
  Receive Date: 20140409
  Receipt Date: 20160510
  Transmission Date: 20160815
  Serious: Yes (Other)
  Sender: FDA-Public Use
  Company Number: CA-ROCHE-1359039

PATIENT
  Age: 59 Year
  Sex: Female
  Weight: 78 kg

DRUGS (12)
  1. MORPHINE [Concomitant]
     Active Substance: MORPHINE
  2. LATEX [Concomitant]
     Active Substance: NATURAL LATEX RUBBER
  3. ACTEMRA [Suspect]
     Active Substance: TOCILIZUMAB
     Route: 042
     Dates: start: 20140210
  4. SPIRONOLACTONE. [Concomitant]
     Active Substance: SPIRONOLACTONE
  5. PLAQUENIL [Concomitant]
     Active Substance: HYDROXYCHLOROQUINE SULFATE
  6. CODEINE [Concomitant]
     Active Substance: CODEINE
  7. ACTEMRA [Suspect]
     Active Substance: TOCILIZUMAB
     Route: 042
     Dates: start: 20141201
  8. METFORMIN [Concomitant]
     Active Substance: METFORMIN HYDROCHLORIDE
  9. ACTEMRA [Suspect]
     Active Substance: TOCILIZUMAB
     Route: 042
     Dates: start: 20130806
  10. TRAZODONE [Concomitant]
     Active Substance: TRAZODONE HYDROCHLORIDE
  11. ACTEMRA [Suspect]
     Active Substance: TOCILIZUMAB
     Indication: RHEUMATOID ARTHRITIS
     Route: 042
     Dates: start: 20120820
  12. METHOTREXATE [Concomitant]
     Active Substance: METHOTREXATE

REACTIONS (17)
  - Corneal abrasion [Recovering/Resolving]
  - Musculoskeletal stiffness [Unknown]
  - Hidradenitis [Recovering/Resolving]
  - Blood pressure increased [Unknown]
  - Weight decreased [Unknown]
  - Candida infection [Unknown]
  - Coeliac disease [Unknown]
  - Oral candidiasis [Not Recovered/Not Resolved]
  - Blood pressure diastolic increased [Unknown]
  - Tooth disorder [Unknown]
  - Serum ferritin decreased [Not Recovered/Not Resolved]
  - Nasopharyngitis [Recovered/Resolved with Sequelae]
  - Blood pressure systolic increased [Unknown]
  - Asthma [Recovering/Resolving]
  - Oropharyngeal pain [Unknown]
  - Lung infection [Unknown]
  - Pneumonia [Recovered/Resolved]

NARRATIVE: CASE EVENT DATE: 2013
